FAERS Safety Report 8943907 (Version 1)
Quarter: 2012Q4

REPORT INFORMATION
  Report Type: 
  Country: DE (occurrence: DE)
  Receive Date: 20121204
  Receipt Date: 20121204
  Transmission Date: 20130627
  Serious: Yes (Hospitalization, Other)
  Sender: FDA-Public Use
  Company Number: DE-WATSON-2012-20742

PATIENT
  Age: 0 Year
  Sex: Male

DRUGS (2)
  1. CITALOPRAM HYDROBROMIDE (UNKNOWN) [Suspect]
     Indication: DEPRESSION
     Dosage: 60 [mg/d]
     Route: 064
     Dates: start: 20090829, end: 20100606
  2. FEMIBION [Concomitant]
     Indication: PROPHYLAXIS OF NEURAL TUBE DEFECT
     Dosage: 0.4 [mg/d]
     Route: 064

REACTIONS (3)
  - Developmental delay [Recovered/Resolved]
  - Neonatal respiratory distress syndrome [Recovered/Resolved]
  - Hypoglycaemia neonatal [Recovered/Resolved]
